FAERS Safety Report 14115711 (Version 3)
Quarter: 2018Q1

REPORT INFORMATION
  Report Type: Spontaneous
  Country: IT (occurrence: IT)
  Receive Date: 20171023
  Receipt Date: 20180116
  Transmission Date: 20180508
  Serious: Yes (Hospitalization, Other)
  Sender: FDA-Public Use
  Company Number: IT-PFIZER INC-2017451279

PATIENT
  Age: 52 Year
  Sex: Male

DRUGS (10)
  1. ESAPENT [Concomitant]
     Dosage: UNK
  2. ZOLOFT [Suspect]
     Active Substance: SERTRALINE HYDROCHLORIDE
     Dosage: UNK
  3. ZYPREXA [Suspect]
     Active Substance: OLANZAPINE
     Indication: BIPOLAR DISORDER
     Dosage: 10 MG, 2X/DAY
     Dates: start: 2007
  4. TRANQUIRIT [Concomitant]
     Active Substance: DIAZEPAM
     Dosage: UNK
  5. HALDOL [Concomitant]
     Active Substance: HALOPERIDOL
     Dosage: UNK
  6. TALOFEN [Concomitant]
     Active Substance: PROMAZINE HYDROCHLORIDE
     Dosage: UNK
  7. LAMICTAL [Concomitant]
     Active Substance: LAMOTRIGINE
     Dosage: UNK
  8. AKINETON [Concomitant]
     Active Substance: BIPERIDEN HYDROCHLORIDE
     Dosage: UNK
  9. URSODEOXYCHOLIC ACID [Concomitant]
     Active Substance: URSODIOL
     Dosage: UNK
  10. TAVOR (LORAZEPAM) [Concomitant]
     Active Substance: LORAZEPAM
     Dosage: UNK

REACTIONS (46)
  - Dental gangrene [Unknown]
  - Alcoholism [Recovered/Resolved]
  - Eye disorder [Unknown]
  - Cough [Unknown]
  - Dissociative identity disorder [Recovered/Resolved]
  - Dry mouth [Unknown]
  - Vertigo [Unknown]
  - Social avoidant behaviour [Unknown]
  - Disturbance in attention [Unknown]
  - Gastrointestinal motility disorder [Unknown]
  - Abdominal distension [Unknown]
  - Obesity [Unknown]
  - Cardiopulmonary failure [Unknown]
  - Discomfort [Unknown]
  - Feeling abnormal [Unknown]
  - Confusional state [Unknown]
  - Drug abuse [Unknown]
  - Dizziness [Unknown]
  - Fatigue [Unknown]
  - Dental caries [Unknown]
  - Ocular discomfort [Unknown]
  - Bulimia nervosa [Unknown]
  - Liver disorder [Unknown]
  - Gamma-glutamyltransferase increased [Unknown]
  - Blood triglycerides increased [Unknown]
  - Salivary hypersecretion [Unknown]
  - Hypotension [Unknown]
  - Toothache [Unknown]
  - Gastritis [Unknown]
  - Depression [Unknown]
  - Laryngitis [Unknown]
  - Libido disorder [Unknown]
  - Loss of libido [Unknown]
  - Gastrooesophageal reflux disease [Unknown]
  - Tic [Unknown]
  - Weight increased [Unknown]
  - Gastroduodenitis [Unknown]
  - Disease recurrence [Unknown]
  - Erectile dysfunction [Unknown]
  - Diarrhoea [Unknown]
  - Dyspepsia [Unknown]
  - Blood prolactin increased [Unknown]
  - Hepatic steatosis [Unknown]
  - Dyspnoea [Unknown]
  - Nail infection [Unknown]
  - Muscular weakness [Unknown]

NARRATIVE: CASE EVENT DATE: 2013
